FAERS Safety Report 4536758-0 (Version None)
Quarter: 2004Q4

REPORT INFORMATION
  Report Type: 
  Country: None (occurrence: None)
  Receive Date: 20041223
  Receipt Date: 20011207
  Transmission Date: 20050328
  Serious: Yes (Hospitalization)
  Sender: FDA-Public Use
  Company Number: CA-ROCHE-303133

PATIENT
  Age: 39 Year
  Sex: Female
  Weight: 60.5 kg

DRUGS (5)
  1. PEG-INTERFERON ALFA 2A (RO 25-8310) [Suspect]
     Route: 058
     Dates: start: 20011022, end: 20020922
  2. RIBAVIRIN [Suspect]
     Route: 048
     Dates: start: 20011022, end: 20011203
  3. RIBAVIRIN [Suspect]
     Route: 048
     Dates: start: 20020107, end: 20020929
  4. ZOLOFT [Concomitant]
     Indication: DEPRESSION
     Dates: start: 20011101
  5. IBUPRIN [Concomitant]

REACTIONS (5)
  - GESTATIONAL DIABETES [None]
  - HAEMOGLOBIN DECREASED [None]
  - PREGNANCY [None]
  - PREMATURE BABY [None]
  - VAGINAL HAEMORRHAGE [None]
